FAERS Safety Report 20490083 (Version 2)
Quarter: 2022Q1

REPORT INFORMATION
  Report Type: Spontaneous
  Country: US (occurrence: US)
  Receive Date: 20220218
  Receipt Date: 20220318
  Transmission Date: 20220423
  Serious: Yes (Life-Threatening)
  Sender: FDA-Public Use
  Company Number: US-009507513-2202USA004263

PATIENT
  Age: 67 Year
  Sex: Male

DRUGS (3)
  1. KEYTRUDA [Suspect]
     Active Substance: PEMBROLIZUMAB
     Indication: Clear cell renal cell carcinoma
  2. NIVOLUMAB [Suspect]
     Active Substance: NIVOLUMAB
     Indication: Clear cell renal cell carcinoma
  3. IPILIMUMAB [Suspect]
     Active Substance: IPILIMUMAB
     Indication: Clear cell renal cell carcinoma

REACTIONS (2)
  - Secondary adrenocortical insufficiency [Unknown]
  - Hypopituitarism [Unknown]
